FAERS Safety Report 19556761 (Version 1)
Quarter: 2021Q3

REPORT INFORMATION
  Report Type: Spontaneous
  Country: HU (occurrence: HU)
  Receive Date: 20210715
  Receipt Date: 20210715
  Transmission Date: 20211014
  Serious: Yes (Other)
  Sender: FDA-Public Use
  Company Number: HU-MYLANLABS-2021M1042247

PATIENT
  Age: 43 Year
  Sex: Male

DRUGS (3)
  1. CISPLATIN. [Suspect]
     Active Substance: CISPLATIN
     Indication: ADENOCARCINOMA
     Dosage: UNK
     Route: 065
  2. SALOFALK                           /00747601/ [Concomitant]
     Active Substance: MESALAMINE
     Indication: CROHN^S DISEASE
     Dosage: UNK
     Route: 065
  3. PEMETREXED. [Suspect]
     Active Substance: PEMETREXED
     Indication: ADENOCARCINOMA
     Dosage: UNK
     Route: 065

REACTIONS (11)
  - Metastases to meninges [Unknown]
  - CSF protein increased [Unknown]
  - Vomiting [Unknown]
  - Ataxia [Unknown]
  - Confusional state [Unknown]
  - CSF cell count increased [Unknown]
  - Adenocarcinoma [Unknown]
  - Nausea [Unknown]
  - Metastases to central nervous system [Unknown]
  - Headache [Unknown]
  - Nuchal rigidity [Unknown]
